FAERS Safety Report 9915327 (Version 3)
Quarter: 2014Q2

REPORT INFORMATION
  Report Type: Spontaneous
  Country: TR (occurrence: TR)
  Receive Date: 20140221
  Receipt Date: 20140408
  Transmission Date: 20141212
  Serious: Yes (Hospitalization, Other)
  Sender: FDA-Public Use
  Company Number: TR-AMGEN-TURSP2014012559

PATIENT
  Age: 40 Year
  Sex: Male
  Weight: 102 kg

DRUGS (7)
  1. ENBREL [Suspect]
     Indication: RHEUMATOID ARTHRITIS
     Dosage: 50 MG, WEEKLY
     Route: 058
     Dates: start: 20100803
  2. ENBREL [Suspect]
     Dosage: UNK
     Route: 065
  3. METHOTREXATE [Suspect]
     Indication: PRODUCT USED FOR UNKNOWN INDICATION
     Dosage: 20 MG, WEEKLY
     Route: 058
     Dates: start: 20100803
  4. COUMADINE [Concomitant]
     Indication: CARDIAC VALVE DISEASE
     Dosage: 5 MG, 1X/DAY
     Dates: start: 201310
  5. COUMADINE [Concomitant]
     Indication: RHEUMATIC HEART DISEASE
  6. PENADUR L-A [Concomitant]
     Indication: RHEUMATIC HEART DISEASE
     Dosage: MONTHLY, UNK
     Route: 030
  7. FOLBIOL [Concomitant]
     Dosage: 5 MG, WEEKLY

REACTIONS (4)
  - Deafness neurosensory [Recovering/Resolving]
  - Tinnitus [Unknown]
  - Vertigo [Unknown]
  - Deafness [Unknown]
